FAERS Safety Report 23981220 (Version 1)
Quarter: 2024Q2

REPORT INFORMATION
  Report Type: Spontaneous
  Country: US (occurrence: None)
  Receive Date: 20240614
  Receipt Date: 20240614
  Transmission Date: 20240716
  Serious: Yes (Hospitalization)
  Sender: FDA-Public Use
  Company Number: None

PATIENT
  Age: 83 Year
  Sex: Female
  Weight: 66.6 kg

DRUGS (21)
  1. OZEMPIC [Suspect]
     Active Substance: SEMAGLUTIDE
  2. Euthryox [Concomitant]
  3. SIMVASTATIN [Concomitant]
  4. LATANOPROST [Concomitant]
  5. BRIMONIDINE [Concomitant]
  6. AMLODIPINE [Concomitant]
  7. CARVEDILOL [Concomitant]
  8. JARDIANCE [Concomitant]
  9. Glimiperide [Concomitant]
  10. Omeprasole [Concomitant]
  11. METHYLCOBALAMIN [Concomitant]
     Active Substance: METHYLCOBALAMIN
  12. METFORMIN [Concomitant]
  13. Pro-Biotic [Concomitant]
  14. Flucasone [Concomitant]
  15. seasonal nasal spray [Concomitant]
  16. CALCIUM [Concomitant]
  17. VITAMIN C [Concomitant]
     Active Substance: ASCORBIC ACID
  18. NeilMed sinus wash [Concomitant]
  19. V.t D3 with Calcium [Concomitant]
  20. MAGNESIUM [Concomitant]
  21. MELATONIN [Concomitant]

REACTIONS (1)
  - Colitis [None]

NARRATIVE: CASE EVENT DATE: 20240531
